FAERS Safety Report 8606753 (Version 4)
Quarter: 2014Q2

REPORT INFORMATION
  Report Type: Spontaneous
  Country: US (occurrence: US)
  Receive Date: 20120611
  Receipt Date: 20140522
  Transmission Date: 20141212
  Serious: Yes (Hospitalization, Disabling, Other)
  Sender: FDA-Public Use
  Company Number: US-ASTRAZENECA-2012SE34477

PATIENT
  Age: 53 Year
  Sex: Male
  Weight: 71.2 kg

DRUGS (20)
  1. NEXIUM [Suspect]
     Indication: GASTROOESOPHAGEAL REFLUX DISEASE
     Route: 048
     Dates: start: 200104, end: 2011
  2. NEXIUM [Suspect]
     Indication: GASTROOESOPHAGEAL REFLUX DISEASE
     Route: 048
     Dates: start: 20010728
  3. NEXIUM [Suspect]
     Indication: GASTROOESOPHAGEAL REFLUX DISEASE
     Route: 048
     Dates: start: 20071203
  4. PRILOSEC OTC [Suspect]
     Indication: GASTROOESOPHAGEAL REFLUX DISEASE
     Route: 048
     Dates: start: 2013
  5. PROTONIX [Concomitant]
     Dates: start: 2001
  6. MYLANTA [Concomitant]
  7. XANAX [Concomitant]
     Indication: PANIC ATTACK
  8. PROZAC [Concomitant]
     Indication: PANIC ATTACK
  9. LOSARTAN [Concomitant]
     Indication: BLOOD PRESSURE ABNORMAL
  10. HYDROCODONE [Concomitant]
     Indication: PAIN
  11. METHADONE [Concomitant]
     Indication: PAIN
  12. BABY ASPIRIN [Concomitant]
  13. HYDROCO/APAP [Concomitant]
     Dosage: 7.5-50
     Dates: start: 20010807
  14. ALPRAZOLAM [Concomitant]
     Dates: start: 20010813
  15. ZOCOR [Concomitant]
     Dates: start: 20010813
  16. FLUOXETINE HCL [Concomitant]
     Dates: start: 20060821
  17. PLAVIX [Concomitant]
     Dates: start: 20070502
  18. CYCLOBENZAPRINE [Concomitant]
     Dates: start: 20090130
  19. SOMA [Concomitant]
     Dates: start: 20091025
  20. METHADONE HCL [Concomitant]
     Dates: start: 20100829

REACTIONS (13)
  - Spinal compression fracture [Unknown]
  - Cervical vertebral fracture [Unknown]
  - Myocardial infarction [Unknown]
  - Musculoskeletal discomfort [Unknown]
  - Iliac artery occlusion [Unknown]
  - Pharyngeal oedema [Unknown]
  - Fall [Unknown]
  - Osteoporosis [Unknown]
  - Androgen deficiency [Unknown]
  - Intervertebral disc degeneration [Unknown]
  - Spinal osteoarthritis [Unknown]
  - Intervertebral disc protrusion [Unknown]
  - Vertebral foraminal stenosis [Unknown]
